FAERS Safety Report 7511151-7 (Version None)
Quarter: 2011Q2

REPORT INFORMATION
  Report Type: 
  Country: None (occurrence: None)
  Receive Date: 20110531
  Receipt Date: 20090625
  Transmission Date: 20111010
  Serious: Yes (Death, Other)
  Sender: FDA-Public Use
  Company Number: US-BAYER-200924883NA

PATIENT
  Age: 48 Year
  Sex: Male
  Weight: 104 kg

DRUGS (10)
  1. ACCUPRIL [Concomitant]
     Dosage: 20 MG DAILY
     Route: 048
     Dates: start: 19920101
  2. ACCUPRIL [Concomitant]
     Dosage: 20MG DAILY
     Route: 048
     Dates: start: 19961218, end: 19961219
  3. TRASYLOL [Suspect]
     Indication: AORTIC VALVE REPLACEMENT
  4. GENTAMYCIN SULFATE [Concomitant]
     Dosage: 120 MG IV NOW FOLLOWED BY 90 MG IV EVERY 12 HOURS
     Route: 042
     Dates: start: 19961218
  5. ULTRAM [Concomitant]
  6. TRASYLOL [Suspect]
     Indication: CORONARY ARTERY BYPASS
     Dosage: 100 ML BOLUS THEN 25 ML/HOUR
     Route: 042
     Dates: start: 19961219, end: 19961219
  7. EXCEDRIN (MIGRAINE) [Concomitant]
  8. VANCOMYCIN [Concomitant]
     Dosage: 1.2 GM IV NOW FOLLOWED BY 1.0 GM IV EVERY 12 HOURS
     Route: 042
     Dates: start: 19961218
  9. TYLENOL REGULAR [Concomitant]
     Dosage: 2 TABLETS NOW AND EVERY 4 HOURS AS NEEDED FOR TEMPERATURE GREATER THAN 38.6
     Route: 048
     Dates: start: 19961219
  10. CARDIZEM [Concomitant]
     Dosage: 300 MG CD DAILY
     Route: 048
     Dates: start: 19961218, end: 19961219

REACTIONS (6)
  - RENAL FAILURE ACUTE [None]
  - INJURY [None]
  - EMOTIONAL DISTRESS [None]
  - CARDIAC ARREST [None]
  - UNEVALUABLE EVENT [None]
  - PAIN [None]
